FAERS Safety Report 8061994-9 (Version None)
Quarter: 2012Q1

REPORT INFORMATION
  Report Type: 
  Country: None (occurrence: None)
  Receive Date: 20120117
  Receipt Date: 20120103
  Transmission Date: 20120608
  Serious: Yes (Death)
  Sender: FDA-Public Use
  Company Number: UTC-014142

PATIENT
  Age: 79 Year
  Sex: Female
  Weight: 59.5 kg

DRUGS (3)
  1. ASPIRIN [Concomitant]
  2. LETAIRIS [Concomitant]
  3. TYVASO [Suspect]
     Indication: PULMONARY ARTERIAL HYPERTENSION
     Dosage: 144 MCG (36 MCG, 4 IN 1 D), INHALATION
     Route: 055
     Dates: start: 20110909

REACTIONS (1)
  - DEATH [None]
